FAERS Safety Report 9526507 (Version 1)
Quarter: 2013Q1

REPORT INFORMATION
  Report Type: Spontaneous
  Country: US (occurrence: None)
  Receive Date: 20130305
  Receipt Date: 20130305
  Transmission Date: 20140127
  Serious: Yes (Other)
  Sender: FDA-Public Use
  Company Number: 163-21880-12033503

PATIENT
  Age: 74 Year
  Sex: Female
  Weight: 60.33 kg

DRUGS (25)
  1. REVLIMID (LENALIDOMIDE) (15 MILLIGRAM, CAPSULES) [Suspect]
     Indication: PLASMA CELL MYELOMA
     Dosage: 15 MG, DAYS 1, 3, 5, 7, 9, 11, 13, PO
     Route: 048
     Dates: start: 20120319
  2. VELCADE (BORTEZOMIB) [Concomitant]
  3. DEXAMETHASONE (DEXAMETHASONE) (4 MILLIGRAM, TABLETS) [Concomitant]
  4. ASPIRIN (ACETYLSALICYLIC ACID) [Concomitant]
  5. CITRACAL (CALCIUM CITRATE) [Concomitant]
  6. FISH OIL (FISH OIL) (CAPSULES) [Concomitant]
  7. FLAX SEED (LINSEED OIL) (CAPSULES) [Concomitant]
  8. LEVOTHYROXIN (LEVOTHYROXINE SODIUM) (TABLETS) [Concomitant]
  9. LORAZEPAM (LORAZEPAM) [Concomitant]
  10. LOSARTAN (LOSARTAN) (TABLETS) [Concomitant]
  11. NADOLOL (NADOLOL) (TABLETS) [Concomitant]
  12. PAROXETINE (PAROXETINE) (TABLETS) [Concomitant]
  13. STOOL SOFTENER (DOCUSATE SODIUM) [Concomitant]
  14. VAGIFEM (ESTRADIOL) (TABLETS) [Concomitant]
  15. ZYRTEC (CETIRIZINE HYDROCHLORIDE) [Concomitant]
  16. MAGNESIUM (MAGNESIUM) (TABLETS) [Concomitant]
  17. ACYCLOVIR (ACICLOVIR) (TABLETS) [Concomitant]
  18. ZOFRAN (ONDANSETRON HYDROCHLORIDE) [Concomitant]
  19. MINERAL OIL (MINERAL OIL EMULSION) [Concomitant]
  20. MIRALAX [Concomitant]
  21. COMPAZINE (PROCHLORPERAZINE EDISYLATE) [Concomitant]
  22. ATIVAN (LORAZEPAM) (TABLETS) [Concomitant]
  23. ONDANSETRON (ONDANSETRON) (TABLETS) [Concomitant]
  24. PREVACID (LANSOPRAZOLE) (CAPSULES) [Concomitant]
  25. PROCHLORPERAZINE (PROCHLORPERAZINE) [Concomitant]

REACTIONS (1)
  - Alanine aminotransferase increased [None]
